FAERS Safety Report 8898949 (Version 2)
Quarter: 2012Q4

REPORT INFORMATION
  Report Type: Report from Study
  Country: US (occurrence: US)
  Receive Date: 20121109
  Receipt Date: 20121217
  Transmission Date: 20130627
  Serious: Yes (Hospitalization)
  Sender: FDA-Public Use
  Company Number: US-US-EMD SERONO, INC.-7172254

PATIENT
  Sex: Female
  Weight: 115 kg

DRUGS (6)
  1. REBIF [Suspect]
     Indication: MULTIPLE SCLEROSIS
     Route: 058
  2. REBIF [Suspect]
     Dates: start: 20120420, end: 201206
  3. ZOLOFT [Concomitant]
     Indication: DEPRESSION
  4. ZOLOFT [Concomitant]
     Indication: ANXIETY
  5. METHADONE [Concomitant]
     Indication: PAIN
  6. NEURONTIN [Concomitant]
     Indication: PAIN

REACTIONS (2)
  - Post-traumatic stress disorder [Recovered/Resolved]
  - Pain [Unknown]
